FAERS Safety Report 11699157 (Version 2)
Quarter: 2015Q4

REPORT INFORMATION
  Report Type: Spontaneous
  Country: FR (occurrence: FR)
  Receive Date: 20151104
  Receipt Date: 20151104
  Transmission Date: 20160304
  Serious: No
  Sender: FDA-Public Use
  Company Number: FR-ANTARES PHARMA, INC.-2015-LIT-ME-0084

PATIENT
  Age: 92 Year
  Sex: Female

DRUGS (1)
  1. METHOTREXATE [Suspect]
     Active Substance: METHOTREXATE
     Indication: PEMPHIGOID
     Dosage: 2.5 MG, QD
     Route: 048

REACTIONS (4)
  - Anaemia [Unknown]
  - Off label use [None]
  - Aphthous ulcer [Recovered/Resolved]
  - Thrombocytopenia [Unknown]
